FAERS Safety Report 15507302 (Version 5)
Quarter: 2019Q3

REPORT INFORMATION
  Report Type: Spontaneous
  Country: US (occurrence: US)
  Receive Date: 20181016
  Receipt Date: 20190830
  Transmission Date: 20191004
  Serious: No
  Sender: FDA-Public Use
  Company Number: US-PFIZER INC-2018416937

PATIENT
  Age: 74 Year
  Sex: Female

DRUGS (2)
  1. IBRANCE [Suspect]
     Active Substance: PALBOCICLIB
     Indication: BREAST CANCER FEMALE
     Dosage: 75 MG, CYCLIC (FOR 21 DAYS ON, 7 DAYS OFF)
     Route: 048
     Dates: start: 20180906, end: 2018
  2. IBRANCE [Suspect]
     Active Substance: PALBOCICLIB
     Dosage: 100 MG, CYCLIC (DAILY FOR 21 DAYS ON, 7 DAYS OFF)
     Route: 048
     Dates: start: 201811

REACTIONS (5)
  - Constipation [Unknown]
  - Fatigue [Unknown]
  - Alopecia [Unknown]
  - Tumour marker abnormal [Unknown]
  - Hot flush [Unknown]

NARRATIVE: CASE EVENT DATE: 201810
